FAERS Safety Report 4318560-8 (Version None)
Quarter: 2004Q1

REPORT INFORMATION
  Report Type: 
  Country: None (occurrence: None)
  Receive Date: 20040318
  Receipt Date: 20040308
  Transmission Date: 20041129
  Serious: Yes (Hospitalization)
  Sender: FDA-Public Use
  Company Number: PHEH2004US02768

PATIENT
  Age: 43 Year
  Sex: Female

DRUGS (2)
  1. CLOZARIL [Suspect]
     Indication: SCHIZOPHRENIA
     Dosage: 300 MG/DAY
     Route: 048
     Dates: start: 20040212, end: 20040305
  2. ZYPREXA [Concomitant]

REACTIONS (10)
  - CHEST PAIN [None]
  - DRUG LEVEL INCREASED [None]
  - ELECTROCARDIOGRAM ABNORMAL [None]
  - ELECTROCARDIOGRAM T WAVE ABNORMAL [None]
  - HEPATOMEGALY [None]
  - HYPOTENSION [None]
  - LABORATORY TEST ABNORMAL [None]
  - PNEUMONIA ASPIRATION [None]
  - SPLENOMEGALY [None]
  - TROPONIN INCREASED [None]
